FAERS Safety Report 17740941 (Version 1)
Quarter: 2020Q2

REPORT INFORMATION
  Report Type: Spontaneous
  Country: JP (occurrence: JP)
  Receive Date: 20200504
  Receipt Date: 20200504
  Transmission Date: 20200714
  Serious: Yes (Life-Threatening, Hospitalization)
  Sender: FDA-Public Use
  Company Number: NVSC2020JP119713

PATIENT
  Age: 49 Year
  Sex: Female

DRUGS (4)
  1. ACETAMINOPHEN (PARACETAMOL) [Suspect]
     Active Substance: ACETAMINOPHEN
     Indication: CEREBRAL PALSY
     Dosage: UNK TWICE AT 4
     Route: 065
  2. PREDNISOLONE. [Suspect]
     Active Substance: PREDNISOLONE
     Indication: PNEUMONIA
     Dosage: 30 MG, QD
     Route: 065
  3. PREDNISOLONE. [Suspect]
     Active Substance: PREDNISOLONE
     Dosage: 5 MG, QD
     Route: 065
  4. METHYLPREDNISOLONE. [Suspect]
     Active Substance: METHYLPREDNISOLONE
     Indication: PNEUMONIA
     Dosage: 1000 MG FOR THREE DAYS
     Route: 065

REACTIONS (6)
  - Pyrexia [Unknown]
  - Product use in unapproved indication [Unknown]
  - Dyspnoea [Recovering/Resolving]
  - Erythema [Unknown]
  - Acute respiratory distress syndrome [Unknown]
  - Toxic epidermal necrolysis [Unknown]
